FAERS Safety Report 19677127 (Version 2)
Quarter: 2022Q1

REPORT INFORMATION
  Report Type: Spontaneous
  Country: GB (occurrence: None)
  Receive Date: 20210810
  Receipt Date: 20220310
  Transmission Date: 20220424
  Serious: Yes (Other)
  Sender: FDA-Public Use
  Company Number: GB-MDD US OPERATIONS-SLP202107-001542

PATIENT
  Age: 29 Year
  Sex: Male

DRUGS (14)
  1. RIMABOTULINUMTOXINB [Suspect]
     Active Substance: RIMABOTULINUMTOXINB
     Indication: Product used for unknown indication
     Dosage: NOT PROVIDED
     Dates: start: 2017
  2. RIMABOTULINUMTOXINB [Suspect]
     Active Substance: RIMABOTULINUMTOXINB
     Dosage: NOT PROVIDED (CHANGED DOSE)
     Dates: start: 2018
  3. TOPIRAMATE [Suspect]
     Active Substance: TOPIRAMATE
     Indication: Product used for unknown indication
     Dosage: NOT PROVIDED
  4. ACETAMINOPHEN [Suspect]
     Active Substance: ACETAMINOPHEN
     Indication: Product used for unknown indication
     Dosage: NOT PROVIDED
  5. IBUPROFEN [Suspect]
     Active Substance: IBUPROFEN
     Indication: Product used for unknown indication
     Dosage: NOT PROVIDED
  6. SERTRALINE [Suspect]
     Active Substance: SERTRALINE HYDROCHLORIDE
     Indication: Product used for unknown indication
     Dosage: NOT PROVIDED
  7. BOTULINUM TOXIN TYPE A [Suspect]
     Active Substance: BOTULINUM TOXIN TYPE A
     Indication: Product used for unknown indication
     Dosage: NOT PROVIDED
     Route: 030
     Dates: start: 2017
  8. BOTULINUM TOXIN TYPE A [Suspect]
     Active Substance: BOTULINUM TOXIN TYPE A
     Dosage: NOT PROVIDED
     Route: 030
     Dates: start: 2018
  9. PREGABALIN [Suspect]
     Active Substance: PREGABALIN
     Indication: Product used for unknown indication
     Dosage: NOT PROVIDED
  10. VALPROATE SODIUM [Suspect]
     Active Substance: VALPROATE SODIUM
     Indication: Product used for unknown indication
     Dosage: NOT PROVIDED
  11. AMITRIPTYLINE [Suspect]
     Active Substance: AMITRIPTYLINE
     Indication: Product used for unknown indication
     Dosage: NOT PROVIDED
  12. TRAZODONE HYDROCHLORIDE [Suspect]
     Active Substance: TRAZODONE HYDROCHLORIDE
     Indication: Product used for unknown indication
     Dosage: NOT PROVIDED
  13. PROTHIADEN [Suspect]
     Active Substance: DOTHIEPIN HYDROCHLORIDE
     Indication: Product used for unknown indication
     Dosage: NOT PROVIDED
  14. DICLOFENAC SODIUM [Suspect]
     Active Substance: DICLOFENAC SODIUM
     Indication: Product used for unknown indication
     Dosage: NOT PROVIDED

REACTIONS (6)
  - Migraine [Unknown]
  - Back pain [Unknown]
  - Head discomfort [Unknown]
  - Neck pain [Unknown]
  - Pain [Unknown]
  - Headache [Unknown]
